FAERS Safety Report 8548023-5 (Version None)
Quarter: 2012Q3

REPORT INFORMATION
  Report Type: 
  Country: None (occurrence: None)
  Receive Date: 20120730
  Receipt Date: 20120717
  Transmission Date: 20120928
  Serious: Yes (Hospitalization)
  Sender: FDA-Public Use
  Company Number: BR-AMGEN-BRASP2012045679

PATIENT
  Age: 48 Year
  Sex: Female
  Weight: 116 kg

DRUGS (11)
  1. ASPIRIN [Concomitant]
     Dosage: UNK UNK, UNK
  2. LORAZEPAM [Concomitant]
     Dosage: UNK UNK, UNK
  3. ENBREL [Suspect]
     Dosage: 50 MG, ONCE WEEKLY
     Route: 058
     Dates: start: 20120601
  4. ENBREL [Suspect]
     Indication: RHEUMATOID ARTHRITIS
     Dosage: 50 MG, ONCE WEEKLY
     Route: 058
     Dates: start: 20100201, end: 20120501
  5. PANTOPRAZOLE [Concomitant]
     Dosage: UNK
  6. CAPTOPRIL [Concomitant]
     Dosage: UNK UNK, UNK
  7. METHOTREXATE [Concomitant]
     Dosage: UNK UNK, UNK
  8. CILOSTAZOL [Concomitant]
     Dosage: UNK UNK, UNK
  9. DICLOFENAC [Concomitant]
     Dosage: UNK UNK, UNK
  10. METICORTEN [Concomitant]
     Dosage: UNK UNK, UNK
  11. CEPHALEXIN [Concomitant]
     Dosage: UNK UNK, UNK

REACTIONS (5)
  - SKIN DISCOLOURATION [None]
  - THROMBOSIS [None]
  - PERIPHERAL COLDNESS [None]
  - HYPOAESTHESIA [None]
  - INJECTION SITE ERYTHEMA [None]
